FAERS Safety Report 17000078 (Version 1)
Quarter: 2019Q4

REPORT INFORMATION
  Report Type: Spontaneous
  Country: US (occurrence: US)
  Receive Date: 20191106
  Receipt Date: 20191106
  Transmission Date: 20200122
  Serious: No
  Sender: FDA-Public Use
  Company Number: US-MAYNE PHARMA-2018MYN001488

PATIENT

DRUGS (2)
  1. CAMILA [Suspect]
     Active Substance: NORETHINDRONE
     Dosage: 1 TABLET QD
     Route: 048
     Dates: start: 2017, end: 201810
  2. CAMILA [Suspect]
     Active Substance: NORETHINDRONE
     Indication: PRODUCT USED FOR UNKNOWN INDICATION
     Dosage: 1 TABLET QD
     Route: 048
     Dates: start: 201810, end: 201810

REACTIONS (3)
  - Suppressed lactation [Unknown]
  - Product formulation issue [Unknown]
  - Emotional disorder [Unknown]

NARRATIVE: CASE EVENT DATE: 201810
